FAERS Safety Report 7178912 (Version 2)
Quarter: 2013Q1

REPORT INFORMATION
  Report Type: Spontaneous
  Country: FR (occurrence: FR)
  Receive Date: 20091117
  Receipt Date: 20130306
  Transmission Date: 20140127
  Serious: Yes (Hospitalization)
  Sender: FDA-Public Use
  Company Number: FR-BAYER-200939065GPV

PATIENT
  Age: 53 Year
  Sex: Male

DRUGS (6)
  1. SORAFENIB (RAF KINASE INHIBITOR) [Suspect]
     Indication: HEPATIC CANCER
     Dosage: 800 MG (DAILY DOSE)
     Route: 048
     Dates: start: 20080201, end: 20081201
  2. SORAFENIB (RAF KINASE INHIBITOR) [Suspect]
     Indication: BONE NEOPLASM
  3. COPEGUS [Concomitant]
     Route: 048
  4. SEVREDOL [Concomitant]
     Route: 048
  5. AMAREL [Concomitant]
     Indication: TYPE 2 DIABETES MELLITUS
     Dosage: 2 MG (DAILY DOSE), QD, ORAL
     Route: 048
  6. DUROGESIC [Concomitant]
     Dosage: 100 MCG/H - 16.8 MG/42 CM^2

REACTIONS (2)
  - Osteonecrosis [Not Recovered/Not Resolved]
  - Arthralgia [Not Recovered/Not Resolved]
